FAERS Safety Report 4872535-9 (Version None)
Quarter: 2006Q1

REPORT INFORMATION
  Report Type: 
  Country: None (occurrence: None)
  Receive Date: 20060103
  Receipt Date: 20051223
  Transmission Date: 20060701
  Serious: Yes (Hospitalization)
  Sender: FDA-Public Use
  Company Number: FR200512003976

PATIENT
  Age: 68 Year
  Sex: Female

DRUGS (2)
  1. FORTEO [Suspect]
     Indication: OSTEOPOROSIS
     Dosage: 20 UG DAILY (1/D), SUBCUTANEOUS
     Route: 058
     Dates: start: 20050725
  2. FORTEO [Concomitant]

REACTIONS (3)
  - COMA [None]
  - DIZZINESS [None]
  - FALL [None]
